FAERS Safety Report 24687551 (Version 2)
Quarter: 2024Q4

REPORT INFORMATION
  Report Type: Report from Study
  Country: US (occurrence: US)
  Receive Date: 20241202
  Receipt Date: 20241205
  Transmission Date: 20250115
  Serious: Yes (Other)
  Sender: PFIZER
  Company Number: US-PFIZER INC-202400313236

PATIENT
  Age: 56 Year
  Sex: Male
  Weight: 111.78 kg

DRUGS (1)
  1. TUKYSA [Suspect]
     Active Substance: TUCATINIB
     Indication: Colon cancer
     Dosage: 300 MG, 2X/DAY
     Route: 048
     Dates: start: 20240906

REACTIONS (1)
  - Renal impairment [Unknown]
